FAERS Safety Report 10613774 (Version 3)
Quarter: 2014Q4

REPORT INFORMATION
  Report Type: Spontaneous
  Country: JP (occurrence: JP)
  Receive Date: 20141128
  Receipt Date: 20141217
  Transmission Date: 20150529
  Serious: Yes (Other)
  Sender: FDA-Public Use
  Company Number: JP-PFIZER INC-2014326108

PATIENT
  Age: 64 Year
  Sex: Female

DRUGS (4)
  1. MUCOSTA [Concomitant]
     Active Substance: REBAMIPIDE
     Dosage: UNK
     Route: 048
  2. CELECOX [Suspect]
     Active Substance: CELECOXIB
     Indication: BACK PAIN
     Dosage: 200 MG, 1X/DAY (STRENGTH: 100MG)
     Route: 048
  3. AMOBAN [Concomitant]
     Active Substance: ZOPICLONE
     Dosage: UNK
     Route: 048
  4. MOHRUS [Concomitant]
     Active Substance: KETOPROFEN
     Dosage: UNK

REACTIONS (3)
  - Oculomucocutaneous syndrome [Recovered/Resolved]
  - Eye pruritus [Recovered/Resolved]
  - Glossodynia [Recovered/Resolved]

NARRATIVE: CASE EVENT DATE: 20141120
